FAERS Safety Report 17573348 (Version 4)
Quarter: 2020Q2

REPORT INFORMATION
  Report Type: Spontaneous
  Country: SE (occurrence: SE)
  Receive Date: 20200323
  Receipt Date: 20200610
  Transmission Date: 20200713
  Serious: Yes (Hospitalization, Other)
  Sender: FDA-Public Use
  Company Number: SE-MYLANLABS-2020M1030114

PATIENT
  Age: 51 Year
  Sex: Female
  Weight: 59 kg

DRUGS (2)
  1. FEMASEKVENS TABLETTER [Suspect]
     Active Substance: ESTRADIOL\NORETHINDRONE ACETATE
     Indication: MENSTRUAL DISORDER
     Dosage: UNK (DAILY) (1-16 TAKE AN ORANGE TABLET EVERY DAY FOR 16 DAYS, 17-28 TAKE A EVERY DAY FOR 12 DAYS)
     Route: 065
     Dates: start: 20190325, end: 20190717
  2. NOVOFEM [Suspect]
     Active Substance: ESTRADIOL HEMIHYDRATE\NORETHINDRONE ACETATE
     Indication: MENSTRUAL DISORDER
     Dosage: 1MG, QD
     Route: 048
     Dates: start: 20190717, end: 201909

REACTIONS (3)
  - Therapy non-responder [Unknown]
  - Breast cancer [Recovering/Resolving]
  - Hypoaesthesia [Unknown]

NARRATIVE: CASE EVENT DATE: 20191015
